FAERS Safety Report 11200604 (Version 2)
Quarter: 2015Q3

REPORT INFORMATION
  Report Type: Spontaneous
  Country: US (occurrence: US)
  Receive Date: 20150618
  Receipt Date: 20150928
  Transmission Date: 20151125
  Serious: Yes (Hospitalization)
  Sender: FDA-Public Use
  Company Number: US-IMPAX LABORATORIES, INC-2015-IPXL-00649

PATIENT
  Sex: Female

DRUGS (23)
  1. CYPROHEPTADINE. [Concomitant]
     Active Substance: CYPROHEPTADINE
     Indication: PRODUCT USED FOR UNKNOWN INDICATION
     Dosage: 4 MG, BID
     Route: 065
     Dates: start: 20150727
  2. DILTIAZEM HYDROCHLORIDE EXTENDED RELEASE [Concomitant]
     Active Substance: DILTIAZEM HYDROCHLORIDE
     Indication: PRODUCT USED FOR UNKNOWN INDICATION
     Dosage: 120 MG, UNK
     Route: 065
     Dates: start: 20150721
  3. AMANTADINE [Concomitant]
     Active Substance: AMANTADINE
     Indication: PRODUCT USED FOR UNKNOWN INDICATION
     Dosage: 100 MG, 2 /DAY
     Route: 048
     Dates: start: 20150721
  4. CALCIUM ANTACID [Concomitant]
     Active Substance: CALCIUM CARBONATE
     Indication: PRODUCT USED FOR UNKNOWN INDICATION
     Dosage: 300 MG
     Route: 065
     Dates: start: 20150721
  5. LEVOTHYROXINE. [Concomitant]
     Active Substance: LEVOTHYROXINE
     Indication: PRODUCT USED FOR UNKNOWN INDICATION
     Dosage: 125 ?G, 1 /DAY
     Route: 065
     Dates: start: 20150718
  6. SPIRONOLACTONE. [Concomitant]
     Active Substance: SPIRONOLACTONE
     Indication: PRODUCT USED FOR UNKNOWN INDICATION
     Dosage: 25 MG, UNK
     Route: 065
     Dates: start: 20150720
  7. CARTIA XT [Concomitant]
     Active Substance: DILTIAZEM HYDROCHLORIDE
     Indication: PRODUCT USED FOR UNKNOWN INDICATION
     Dosage: 180 MG, 1 /DAY
     Route: 048
     Dates: start: 20150419
  8. NEXIUM [Concomitant]
     Active Substance: ESOMEPRAZOLE MAGNESIUM
     Indication: PRODUCT USED FOR UNKNOWN INDICATION
     Dosage: 40 MG, 1 /DAY
     Route: 048
     Dates: start: 20141103
  9. SERTRALINE [Concomitant]
     Active Substance: SERTRALINE HYDROCHLORIDE
     Indication: PRODUCT USED FOR UNKNOWN INDICATION
     Dosage: 50 MG, UNK
     Route: 065
     Dates: start: 20150721
  10. VITAMIN B12 [Concomitant]
     Active Substance: CYANOCOBALAMIN
     Dosage: 100 ?G, UNK
     Route: 065
     Dates: start: 20150721
  11. RYTARY [Suspect]
     Active Substance: CARBIDOPA\LEVODOPA
     Indication: PARKINSON^S DISEASE
     Dosage: UNK
     Route: 048
     Dates: start: 20150408
  12. MAPAP EXTRA STRENGTH [Concomitant]
     Active Substance: ACETAMINOPHEN
     Indication: PRODUCT USED FOR UNKNOWN INDICATION
     Dosage: 500 MG, UNK
     Route: 065
     Dates: start: 20150721
  13. RYTARY [Suspect]
     Active Substance: CARBIDOPA\LEVODOPA
     Dosage: (36.25/145MG) THREE CAPSULES FOUR TIMES DAILY
     Route: 048
     Dates: start: 20150528
  14. BACLOFEN. [Concomitant]
     Active Substance: BACLOFEN
     Indication: PRODUCT USED FOR UNKNOWN INDICATION
     Dosage: 10 MG, DAILY
     Route: 048
     Dates: start: 20150721
  15. CALTRATE 600+D [Concomitant]
     Indication: PRODUCT USED FOR UNKNOWN INDICATION
     Dosage: 600 MG, 1 /DAY
     Route: 065
     Dates: start: 20141103
  16. DOCQLACE [Concomitant]
     Active Substance: DOCUSATE SODIUM
     Indication: PRODUCT USED FOR UNKNOWN INDICATION
     Dosage: 100 MG, TID
     Route: 065
     Dates: start: 20150722
  17. OMEPRAZOLE. [Concomitant]
     Active Substance: OMEPRAZOLE
     Indication: PRODUCT USED FOR UNKNOWN INDICATION
     Dosage: 40 MG, UNK
     Route: 065
     Dates: start: 20150721
  18. VITAMIN B12 [Concomitant]
     Active Substance: CYANOCOBALAMIN
     Indication: PRODUCT USED FOR UNKNOWN INDICATION
     Dosage: 500 MG, DAILY
     Route: 065
     Dates: start: 20141103
  19. ALPRAZOLAM. [Concomitant]
     Active Substance: ALPRAZOLAM
     Indication: PRODUCT USED FOR UNKNOWN INDICATION
     Dosage: 0.5 MG
     Route: 065
     Dates: start: 20150629
  20. TUMS [Concomitant]
     Active Substance: CALCIUM CARBONATE
     Indication: PRODUCT USED FOR UNKNOWN INDICATION
     Dosage: 1-2 DAILY PRN
     Route: 065
     Dates: start: 20141103
  21. XANAX [Concomitant]
     Active Substance: ALPRAZOLAM
     Indication: PRODUCT USED FOR UNKNOWN INDICATION
     Dosage: PRN
     Route: 065
     Dates: start: 20150428
  22. BENICAR [Concomitant]
     Active Substance: OLMESARTAN MEDOXOMIL
     Indication: PRODUCT USED FOR UNKNOWN INDICATION
     Dosage: 40 MG, 1 /DAY
     Route: 048
     Dates: start: 20150721
  23. CARBIDOPA LEVODOPA [Concomitant]
     Active Substance: CARBIDOPA\LEVODOPA
     Indication: PRODUCT USED FOR UNKNOWN INDICATION
     Dosage: (25/100MG) TID
     Route: 065
     Dates: start: 20150720

REACTIONS (1)
  - Suicidal ideation [Recovered/Resolved]

NARRATIVE: CASE EVENT DATE: 201506
